FAERS Safety Report 9934454 (Version 3)
Quarter: 2014Q3

REPORT INFORMATION
  Report Type: Not Available
  Country: IT (occurrence: IT)
  Receive Date: 20140228
  Receipt Date: 20140905
  Transmission Date: 20150326
  Serious: Yes (Hospitalization)
  Sender: FDA-Public Use
  Company Number: IT-NAPPMUNDI-GBR-2014-0017135

PATIENT
  Sex: Female

DRUGS (6)
  1. BIFRIZIDE [Concomitant]
     Active Substance: HYDROCHLOROTHIAZIDE
     Indication: HYPERTENSION
     Dosage: (30/12.5) MG, DAILY
     Dates: start: 20120101, end: 20140131
  2. HUMALOG [Concomitant]
     Active Substance: INSULIN LISPRO
  3. CIPRALEX [Concomitant]
     Active Substance: ESCITALOPRAM OXALATE
     Dosage: UNK
     Dates: start: 20120101, end: 20140131
  4. OXYCONTIN [Suspect]
     Active Substance: OXYCODONE HYDROCHLORIDE
     Indication: METASTATIC PAIN
     Dosage: 40 MG/ 20 MG, BID
     Route: 048
     Dates: start: 20120101, end: 20140131
  5. METFORMIN HYDROCHLORIDE. [Concomitant]
     Active Substance: METFORMIN HYDROCHLORIDE
  6. OMEPRAZOLE. [Concomitant]
     Active Substance: OMEPRAZOLE

REACTIONS (1)
  - Ileus paralytic [Recovered/Resolved]
